FAERS Safety Report 17867294 (Version 1)
Quarter: 2020Q2

REPORT INFORMATION
  Report Type: Report from Study
  Country: US (occurrence: US)
  Receive Date: 20200605
  Receipt Date: 20200605
  Transmission Date: 20200714
  Serious: Yes (Other)
  Sender: FDA-Public Use
  Company Number: US-ASTRAZENECA-2020SE70607

PATIENT
  Sex: Male

DRUGS (3)
  1. LYNPARZA [Suspect]
     Active Substance: OLAPARIB
     Indication: APPENDIX CANCER
     Route: 048
     Dates: end: 202002
  2. LYNPARZA [Suspect]
     Active Substance: OLAPARIB
     Indication: METASTASES TO LUNG
     Route: 048
     Dates: end: 202002
  3. LYNPARZA [Suspect]
     Active Substance: OLAPARIB
     Indication: INTESTINAL METASTASIS
     Route: 048
     Dates: end: 202002

REACTIONS (1)
  - Condition aggravated [Unknown]
